FAERS Safety Report 9680800 (Version 1)
Quarter: 2013Q4

REPORT INFORMATION
  Report Type: Report from Study
  Country: US (occurrence: US)
  Receive Date: 20131111
  Receipt Date: 20131111
  Transmission Date: 20140711
  Serious: Yes (Other)
  Sender: FDA-Public Use
  Company Number: PHEH2013US023168

PATIENT
  Sex: Male
  Weight: 85.71 kg

DRUGS (1)
  1. TASIGNA [Suspect]
     Indication: LEUKAEMIA
     Dosage: 300 MG, BID
     Route: 048
     Dates: start: 20101105

REACTIONS (1)
  - Cerebrovascular accident [Unknown]
